FAERS Safety Report 10659261 (Version 1)
Quarter: 2014Q4

REPORT INFORMATION
  Report Type: Spontaneous
  Country: US (occurrence: None)
  Receive Date: 20141216
  Receipt Date: 20141216
  Transmission Date: 20150529
  Serious: No
  Sender: FDA-Public Use
  Company Number: None

PATIENT
  Age: 66 Year
  Sex: Female
  Weight: 102.51 kg

DRUGS (1)
  1. TAMIFLU [Suspect]
     Active Substance: OSELTAMIVIR PHOSPHATE
     Indication: INFLUENZA
     Dosage: 1 CAP  /2X DAY WITH FOOD  TWICE DAILY TAKEN BY MOUTH
     Route: 048
     Dates: start: 20141205, end: 20141206

REACTIONS (7)
  - Abdominal pain [None]
  - Dizziness [None]
  - Insomnia [None]
  - Nightmare [None]
  - Nausea [None]
  - Dysstasia [None]
  - Diarrhoea [None]

NARRATIVE: CASE EVENT DATE: 20141214
